FAERS Safety Report 8234916-5 (Version None)
Quarter: 2012Q1

REPORT INFORMATION
  Report Type: 
  Country: None (occurrence: None)
  Receive Date: 20120326
  Receipt Date: 20120312
  Transmission Date: 20120608
  Serious: No
  Sender: FDA-Public Use
  Company Number: US-B.I. PHARMACEUTICALS,INC./RIDGEFIELD-2012-BP-04645BP

PATIENT
  Sex: Female

DRUGS (15)
  1. LIPITOR [Concomitant]
     Indication: BLOOD CHOLESTEROL INCREASED
  2. SEROQUEL [Concomitant]
     Indication: ANXIETY
  3. RESCUE INHALER [Concomitant]
     Indication: DYSPNOEA
  4. PRILOSEC [Concomitant]
     Indication: GASTROOESOPHAGEAL REFLUX DISEASE
  5. NEURONTIN [Concomitant]
     Indication: NEURALGIA
  6. DIOVAN [Concomitant]
     Indication: HYPERTENSION
  7. PRISTIQ [Concomitant]
     Indication: ANXIETY
  8. SEROQUEL [Concomitant]
     Indication: DEPRESSION
  9. NIFEDIPINE [Concomitant]
     Indication: HYPERTENSION
  10. PRISTIQ [Concomitant]
     Indication: DEPRESSION
  11. SPIRIVA [Suspect]
     Indication: CHRONIC OBSTRUCTIVE PULMONARY DISEASE
     Dosage: 18 MCG
     Route: 055
     Dates: start: 20110301
  12. KLONOPIN [Concomitant]
     Indication: ANXIETY
  13. KLONOPIN [Concomitant]
     Indication: INSOMNIA
  14. ASPIRIN [Concomitant]
     Indication: CARDIOVASCULAR EVENT PROPHYLAXIS
  15. QVAR 40 [Concomitant]
     Indication: CHRONIC OBSTRUCTIVE PULMONARY DISEASE
     Dosage: 2 PUF
     Route: 055

REACTIONS (3)
  - UPPER RESPIRATORY TRACT INFECTION [None]
  - COUGH [None]
  - DYSPNOEA [None]
